FAERS Safety Report 10285555 (Version 7)
Quarter: 2015Q2

REPORT INFORMATION
  Report Type: Report from Study
  Country: US (occurrence: US)
  Receive Date: 20140709
  Receipt Date: 20150401
  Transmission Date: 20150821
  Serious: No
  Sender: FDA-Public Use
  Company Number: US-ALEXION-A201402273

PATIENT

DRUGS (3)
  1. SOLIRIS [Suspect]
     Active Substance: ECULIZUMAB
     Indication: HAEMOLYTIC URAEMIC SYNDROME
     Dosage: 1200 MG, Q2W
     Route: 042
     Dates: start: 20140417
  2. UNASYN [Concomitant]
     Active Substance: AMPICILLIN SODIUM\SULBACTAM SODIUM
     Indication: ANTIBIOTIC THERAPY
     Dosage: UNK, DAILY
     Route: 042
     Dates: start: 20140417
  3. SOLIRIS [Suspect]
     Active Substance: ECULIZUMAB
     Dosage: 900 MG, UNK
     Route: 042
     Dates: start: 20140725

REACTIONS (12)
  - Walking disability [Unknown]
  - Blood potassium decreased [Not Recovered/Not Resolved]
  - Vitamin B12 decreased [Not Recovered/Not Resolved]
  - Catheter site pain [Recovered/Resolved]
  - Incorrect dose administered [Recovered/Resolved]
  - Otitis media [Recovering/Resolving]
  - Infusion related reaction [Recovered/Resolved]
  - Thinking abnormal [Unknown]
  - Renal disorder [Unknown]
  - Nasopharyngitis [Recovered/Resolved]
  - Vertigo [Unknown]
  - Diarrhoea [Not Recovered/Not Resolved]

NARRATIVE: CASE EVENT DATE: 201406
